FAERS Safety Report 8548680-3 (Version None)
Quarter: 2012Q2

REPORT INFORMATION
  Report Type: 
  Country: None (occurrence: None)
  Receive Date: 20120416
  Receipt Date: 20110427
  Transmission Date: 20120825
  Serious: Yes (Other)
  Sender: FDA-Public Use
  Company Number: PHHY2011US35545

PATIENT
  Sex: Male

DRUGS (7)
  1. TEKTURNA [Suspect]
  2. CLONIDINE [Suspect]
     Dosage: ONE EVERY 07 DAY
  3. INSULIN [Concomitant]
  4. CHOLESTEROL (CHOLESTEROL) [Concomitant]
  5. DILTIAZEM [Suspect]
  6. DIOVAN [Suspect]
  7. LOPRESSOR [Suspect]

REACTIONS (1)
  - HYPERTENSION [None]
